FAERS Safety Report 9490601 (Version 1)
Quarter: 2013Q3

REPORT INFORMATION
  Report Type: Spontaneous
  Country: US (occurrence: None)
  Receive Date: 20130828
  Receipt Date: 20130828
  Transmission Date: 20140515
  Serious: Yes (Hospitalization)
  Sender: FDA-Public Use
  Company Number: None

PATIENT
  Age: 65 Year
  Sex: Male
  Weight: 95.5 kg

DRUGS (1)
  1. AMIODARONE [Suspect]
     Indication: VENTRICULAR TACHYCARDIA
     Dosage: 200 MG EVERY DAY PO
     Route: 048
     Dates: start: 20121106, end: 20130813

REACTIONS (1)
  - Hyperthyroidism [None]
